FAERS Safety Report 8179180-0 (Version None)
Quarter: 2012Q1

REPORT INFORMATION
  Report Type: 
  Country: None (occurrence: None)
  Receive Date: 20120227
  Receipt Date: 20120215
  Transmission Date: 20120608
  Serious: Yes (Other)
  Sender: FDA-Public Use
  Company Number: 1000028221

PATIENT
  Age: 77 Year
  Sex: Female

DRUGS (11)
  1. MEMANTINE HYDROCHLORIDE [Suspect]
     Indication: DEMENTIA ALZHEIMER'S TYPE
     Dosage: 20 MG (20 MG, 1 IN 1 D), ORAL
     Route: 048
     Dates: start: 20120107, end: 20120126
  2. ALOSENN (SENNA ALEXANDRINA) (SENNA ALEXANDRINA) [Concomitant]
  3. MAGLAX (MAGNESIUM OXIDE) [Concomitant]
  4. MEMANTINE HYDROCHLORIDE [Suspect]
     Indication: DEMENTIA ALZHEIMER'S TYPE
     Dosage: 5;10;15 MG (5 MG, 1 IN 1 D), ORAL
     Route: 048
     Dates: start: 20111224, end: 20111230
  5. MEMANTINE HYDROCHLORIDE [Suspect]
     Indication: DEMENTIA ALZHEIMER'S TYPE
     Dosage: 5;10;15 MG (5 MG, 1 IN 1 D), ORAL
     Route: 048
     Dates: start: 20111217, end: 20111223
  6. MEMANTINE HYDROCHLORIDE [Suspect]
     Indication: DEMENTIA ALZHEIMER'S TYPE
     Dosage: 5;10;15 MG (5 MG, 1 IN 1 D), ORAL
     Route: 048
     Dates: start: 20111231, end: 20120106
  7. LIPITOR [Concomitant]
  8. DIAZEPAM [Concomitant]
  9. ASPIRIN [Concomitant]
  10. ARICEPT [Concomitant]
  11. GLYCERON (AMINOACETIC ACID, DL-METHIONINE, GLYCYRRHIZIC ACID) [Concomitant]

REACTIONS (9)
  - GAIT DISTURBANCE [None]
  - MOBILITY DECREASED [None]
  - ALANINE AMINOTRANSFERASE INCREASED [None]
  - SOMNOLENCE [None]
  - HEPATIC FUNCTION ABNORMAL [None]
  - DIZZINESS [None]
  - MUSCULAR WEAKNESS [None]
  - CONSTIPATION [None]
  - ASPARTATE AMINOTRANSFERASE INCREASED [None]
